FAERS Safety Report 9778671 (Version 2)
Quarter: 2013Q4

REPORT INFORMATION
  Report Type: Spontaneous
  Country: ES (occurrence: ES)
  Receive Date: 20131223
  Receipt Date: 20131223
  Transmission Date: 20140711
  Serious: Yes (Life-Threatening, Hospitalization)
  Sender: FDA-Public Use
  Company Number: ES-SA-SWI91000823

PATIENT
  Age: 30 Year
  Sex: Male

DRUGS (4)
  1. CHLOROQUINE PHOSPHATE [Suspect]
     Indication: PROPHYLAXIS
     Route: 065
  2. CHLOROQUINE PHOSPHATE [Suspect]
     Indication: SUICIDE ATTEMPT
     Route: 065
  3. CHLOROQUINE PHOSPHATE [Suspect]
     Indication: PROPHYLAXIS
     Route: 048
  4. CHLOROQUINE PHOSPHATE [Suspect]
     Indication: SUICIDE ATTEMPT
     Route: 048

REACTIONS (10)
  - Suicide attempt [Unknown]
  - Coma [Recovered/Resolved]
  - Overdose [Unknown]
  - Coma scale abnormal [Recovered/Resolved]
  - Cardio-respiratory arrest [Recovered/Resolved]
  - Ventricular fibrillation [Recovered/Resolved]
  - Tachycardia [Recovered/Resolved]
  - Hypoxia [Recovered/Resolved]
  - Hypercapnia [Recovered/Resolved]
  - Hypokalaemia [Recovered/Resolved]
